FAERS Safety Report 7576115-6 (Version None)
Quarter: 2011Q2

REPORT INFORMATION
  Report Type: 
  Country: None (occurrence: None)
  Receive Date: 20110623
  Receipt Date: 20110623
  Transmission Date: 20111010
  Serious: Yes (Life-Threatening)
  Sender: FDA-Public Use
  Company Number: None

PATIENT
  Age: 61 Year
  Sex: Female
  Weight: 81.6475 kg

DRUGS (2)
  1. SYNTHROID [Suspect]
     Indication: THYROID DISORDER
     Dosage: 1 EVERY OTHER DAY
     Dates: start: 19950101
  2. SYNTHROID [Suspect]
     Indication: THYROID DISORDER
     Dosage: 1 EVERY OTHER DAY
     Dates: start: 19950101

REACTIONS (2)
  - CARDIAC FAILURE [None]
  - MYALGIA [None]
